FAERS Safety Report 11590977 (Version 1)
Quarter: 2015Q4

REPORT INFORMATION
  Report Type: Spontaneous
  Country: US (occurrence: US)
  Receive Date: 20151003
  Receipt Date: 20151003
  Transmission Date: 20160304
  Serious: No
  Sender: FDA-Public Use
  Company Number: US-009507513-1509USA010240

PATIENT
  Age: 23 Year
  Sex: Female
  Weight: 105 kg

DRUGS (1)
  1. NEXPLANON [Suspect]
     Active Substance: ETONOGESTREL
     Indication: CONTRACEPTION
     Dosage: UNK, EVERY 3 YEARS, LEFT ARM
     Dates: start: 20141223

REACTIONS (8)
  - Anaemia [Unknown]
  - Anxiety [Unknown]
  - Neck pain [Unknown]
  - Menorrhagia [Unknown]
  - Headache [Unknown]
  - Back pain [Unknown]
  - Malaise [Unknown]
  - Thrombosis [Unknown]

NARRATIVE: CASE EVENT DATE: 20141223
